FAERS Safety Report 25763611 (Version 1)
Quarter: 2025Q3

REPORT INFORMATION
  Report Type: Spontaneous
  Country: US (occurrence: US)
  Receive Date: 20250905
  Receipt Date: 20250905
  Transmission Date: 20251020
  Serious: No
  Sender: DOMPE FARMACEUTICI
  Company Number: US-FARMAPROD-202410-3570

PATIENT
  Sex: Male

DRUGS (6)
  1. OXERVATE [Suspect]
     Active Substance: CENEGERMIN-BKBJ
     Indication: Neurotrophic keratopathy
     Route: 047
     Dates: start: 20240919
  2. VALACYCLOVIR [Concomitant]
     Active Substance: VALACYCLOVIR HYDROCHLORIDE
  3. VITAMIN C [Concomitant]
     Active Substance: ASCORBIC ACID
  4. PREDNISOLONE-NEPAFENAC [Concomitant]
  5. ERYTHROMYCIN [Concomitant]
     Active Substance: ERYTHROMYCIN
  6. OFLOXACIN [Concomitant]
     Active Substance: OFLOXACIN

REACTIONS (1)
  - Visual impairment [Recovered/Resolved]
